FAERS Safety Report 5008482-1 (Version None)
Quarter: 2006Q2

REPORT INFORMATION
  Report Type: 
  Country: None (occurrence: None)
  Receive Date: 20060522
  Receipt Date: 20060522
  Transmission Date: 20061013
  Serious: No
  Sender: FDA-Public Use
  Company Number: None

PATIENT
  Sex: Male
  Weight: 85.2762 kg

DRUGS (1)
  1. ZICAM            ZICAM LLC PHOENIX, AZ 85016 [Suspect]
     Indication: NASAL CONGESTION
     Dosage: DURATION: 2 EVENINGS ONCE EACH TIME --

REACTIONS (1)
  - AGEUSIA [None]
